FAERS Safety Report 10196154 (Version 1)
Quarter: 2014Q2

REPORT INFORMATION
  Report Type: Report from Study
  Country: US (occurrence: US)
  Receive Date: 20140527
  Receipt Date: 20140527
  Transmission Date: 20141212
  Serious: Yes (Other)
  Sender: FDA-Public Use
  Company Number: US-ROCHE-1407306

PATIENT
  Sex: Female
  Weight: 70.37 kg

DRUGS (5)
  1. PERJETA [Suspect]
     Indication: BREAST CANCER METASTATIC
     Route: 065
     Dates: start: 201401
  2. HERCEPTIN [Suspect]
     Indication: BREAST CANCER METASTATIC
     Route: 065
     Dates: start: 2009, end: 2010
  3. HERCEPTIN [Suspect]
     Indication: BREAST CANCER
     Route: 065
     Dates: start: 201401
  4. DOCETAXEL [Concomitant]
     Indication: BREAST CANCER METASTATIC
     Route: 065
     Dates: start: 201401, end: 20140420
  5. TAXOL [Concomitant]
     Indication: BREAST CANCER
     Dosage: EVERY WEEK
     Route: 065
     Dates: start: 2009

REACTIONS (4)
  - Metastases to liver [Not Recovered/Not Resolved]
  - Recurrent cancer [Not Recovered/Not Resolved]
  - Alopecia [Recovered/Resolved]
  - Hair growth abnormal [Not Recovered/Not Resolved]
